FAERS Safety Report 23880029 (Version 1)
Quarter: 2024Q2

REPORT INFORMATION
  Report Type: Spontaneous
  Country: US (occurrence: US)
  Receive Date: 20240521
  Receipt Date: 20240521
  Transmission Date: 20240716
  Serious: Yes (Hospitalization)
  Sender: FDA-Public Use
  Company Number: US-ABBVIE-5766055

PATIENT
  Sex: Female

DRUGS (2)
  1. SYNTHROID [Suspect]
     Active Substance: LEVOTHYROXINE SODIUM
     Indication: Autoimmune thyroiditis
     Route: 048
  2. LEVOTHYROXINE SODIUM [Suspect]
     Active Substance: LEVOTHYROXINE SODIUM
     Indication: Autoimmune thyroiditis
     Route: 048
     Dates: start: 2017, end: 2022

REACTIONS (16)
  - Blood pressure increased [Unknown]
  - Goitre [Unknown]
  - Feeling abnormal [Unknown]
  - Feeling abnormal [Recovered/Resolved]
  - Thyroid disorder [Unknown]
  - Headache [Recovered/Resolved]
  - Headache [Unknown]
  - Chest pain [Unknown]
  - Oedema [Unknown]
  - Goitre [Unknown]
  - Feeling abnormal [Unknown]
  - Malaise [Unknown]
  - Peripheral swelling [Unknown]
  - Feeling abnormal [Recovered/Resolved]
  - Off label use [Not Recovered/Not Resolved]
  - Blood thyroid stimulating hormone abnormal [Unknown]

NARRATIVE: CASE EVENT DATE: 20170101
